FAERS Safety Report 4679421-8 (Version None)
Quarter: 2005Q2

REPORT INFORMATION
  Report Type: 
  Country: None (occurrence: None)
  Receive Date: 20050602
  Receipt Date: 19960822
  Transmission Date: 20051028
  Serious: Yes (Other)
  Sender: FDA-Public Use
  Company Number: 1996AS00236

PATIENT
  Age: 13 Year
  Sex: Male
  Weight: 44 kg

DRUGS (4)
  1. NAROPIN [Suspect]
     Indication: PAIN
     Dosage: DOSE: 20 MG
     Route: 008
     Dates: start: 19960819, end: 19960819
  2. BACLOFEN [Suspect]
  3. IMIPRAMINE HCL [Suspect]
  4. DIAZEPAM [Concomitant]

REACTIONS (10)
  - BLOOD PRESSURE DECREASED [None]
  - BUNDLE BRANCH BLOCK [None]
  - CARDIAC SEPTAL DEFECT [None]
  - CONVULSIVE THRESHOLD LOWERED [None]
  - DRUG LEVEL INCREASED [None]
  - DRUG TOXICITY [None]
  - GRAND MAL CONVULSION [None]
  - INCORRECT ROUTE OF DRUG ADMINISTRATION [None]
  - SINUS TACHYCARDIA [None]
  - TACHYCARDIA [None]
